FAERS Safety Report 7898617-5 (Version None)
Quarter: 2011Q4

REPORT INFORMATION
  Report Type: 
  Country: None (occurrence: None)
  Receive Date: 20111107
  Receipt Date: 20111107
  Transmission Date: 20120403
  Serious: Yes (Other)
  Sender: FDA-Public Use
  Company Number: None

PATIENT
  Age: 32 Year
  Sex: Female
  Weight: 74.842 kg

DRUGS (1)
  1. STELARA [Suspect]
     Indication: PSORIASIS
     Dosage: 45 MG/0.5 ML
     Route: 058
     Dates: start: 20100701, end: 20111021

REACTIONS (1)
  - MULTIPLE SCLEROSIS [None]
